FAERS Safety Report 9286344 (Version 1)
Quarter: 2013Q2

REPORT INFORMATION
  Report Type: Spontaneous
  Country: US (occurrence: None)
  Receive Date: 20130503
  Receipt Date: 20130503
  Transmission Date: 20140414
  Serious: Yes (Other)
  Sender: FDA-Public Use
  Company Number: KAD201304-000491

PATIENT
  Age: 56 Year
  Sex: Male

DRUGS (5)
  1. RIBAVIRIN (RIBAVIRIN) [Suspect]
     Indication: HEPATITIS C
     Dosage: STOPPED
  2. INTERFERON ALFACON-1 (INTERFERON ALFACON-1) [Suspect]
     Indication: HEPATITIS C
     Dosage: STOPPED
  3. PEGINTERFERON [Suspect]
     Indication: HEPATITIS C
     Dosage: STOPPED
  4. TACROLIMUS (TACROLIMUS) [Suspect]
  5. PREDNISONE (PREDNISONE) [Suspect]

REACTIONS (10)
  - Hepatic failure [None]
  - Hepatitis chronic active [None]
  - Hepatitis cholestatic [None]
  - Ascites [None]
  - No therapeutic response [None]
  - Liver transplant [None]
  - Alanine aminotransferase increased [None]
  - Blood alkaline phosphatase increased [None]
  - Aspartate aminotransferase increased [None]
  - Blood bilirubin increased [None]
